FAERS Safety Report 23974973 (Version 2)
Quarter: 2024Q4

REPORT INFORMATION
  Report Type: Spontaneous
  Country: JP (occurrence: JP)
  Receive Date: 20240614
  Receipt Date: 20241014
  Transmission Date: 20250115
  Serious: Yes (Other)
  Sender: UNKNOWN
  Company Number: JP-CORZA MEDICAL GMBH-2024-JP-002256

PATIENT
  Age: 77 Year
  Sex: Male
  Weight: 47.9 kg

DRUGS (2)
  1. TACHOSIL [Suspect]
     Active Substance: FIBRINOGEN HUMAN\THROMBIN HUMAN
     Indication: Pulmonary air leakage
     Dosage: UNK
     Route: 065
  2. APIXABAN [Concomitant]
     Active Substance: APIXABAN
     Indication: Thrombosis
     Dosage: UNK
     Route: 048

REACTIONS (5)
  - Pulmonary air leakage [Unknown]
  - Subcutaneous emphysema [Unknown]
  - Pulmonary pneumatocele [Unknown]
  - Traumatic lung injury [Unknown]
  - Off label use [Unknown]
